FAERS Safety Report 6379903-7 (Version None)
Quarter: 2009Q3

REPORT INFORMATION
  Report Type: 
  Country: None (occurrence: None)
  Receive Date: 20090928
  Receipt Date: 20090917
  Transmission Date: 20100115
  Serious: Yes (Other)
  Sender: FDA-Public Use
  Company Number: PHEH2009US10123

PATIENT
  Sex: Female

DRUGS (4)
  1. EXELON [Suspect]
  2. FOSAMAX [Suspect]
  3. TEGRETOL [Concomitant]
  4. MIACALCIN [Concomitant]

REACTIONS (5)
  - BONE DENSITY ABNORMAL [None]
  - DEMENTIA [None]
  - DRUG INEFFECTIVE [None]
  - HYPOTHYROIDISM [None]
  - PULMONARY HYPERTENSION [None]
